FAERS Safety Report 16206594 (Version 1)
Quarter: 2019Q2

REPORT INFORMATION
  Report Type: Spontaneous
  Country: US (occurrence: US)
  Receive Date: 20190417
  Receipt Date: 20190417
  Transmission Date: 20190711
  Serious: Yes (Other)
  Sender: FDA-Public Use
  Company Number: PHHY2019US082799

PATIENT
  Age: 46 Year
  Sex: Male

DRUGS (10)
  1. HALOPERIDOL. [Suspect]
     Active Substance: HALOPERIDOL
     Indication: PSYCHOTIC DISORDER
  2. CLONAZEPAM. [Suspect]
     Active Substance: CLONAZEPAM
     Indication: PSYCHOTIC DISORDER
  3. OLANZAPINE. [Suspect]
     Active Substance: OLANZAPINE
     Indication: PSYCHOTIC DISORDER
  4. BENZTROPINE. [Suspect]
     Active Substance: BENZTROPINE
     Indication: MANIA
     Dosage: UNK
     Route: 030
  5. OLANZAPINE. [Suspect]
     Active Substance: OLANZAPINE
     Indication: MANIA
     Dosage: UNK
     Route: 065
  6. CLONAZEPAM. [Suspect]
     Active Substance: CLONAZEPAM
     Indication: MANIA
     Dosage: UNK
     Route: 065
  7. LAMOTRIGINE. [Suspect]
     Active Substance: LAMOTRIGINE
     Indication: PSYCHOTIC DISORDER
  8. SEROQUEL [Suspect]
     Active Substance: QUETIAPINE FUMARATE
     Indication: MANIA
     Dosage: UNK
     Route: 065
  9. LAMOTRIGINE. [Suspect]
     Active Substance: LAMOTRIGINE
     Indication: MANIA
     Dosage: UNK
     Route: 065
  10. HALOPERIDOL. [Suspect]
     Active Substance: HALOPERIDOL
     Indication: MANIA
     Dosage: UNK
     Route: 065

REACTIONS (17)
  - Hallucination, visual [Recovering/Resolving]
  - Hyperreflexia [Recovering/Resolving]
  - Anal incontinence [Recovering/Resolving]
  - Mania [Recovered/Resolved]
  - Sleep disorder [Recovering/Resolving]
  - Pyrexia [Recovering/Resolving]
  - Agitation [Recovered/Resolved]
  - Product use in unapproved indication [Unknown]
  - Depersonalisation/derealisation disorder [Recovering/Resolving]
  - Disturbance in attention [Recovering/Resolving]
  - Posture abnormal [Recovering/Resolving]
  - Energy increased [Recovering/Resolving]
  - Tachycardia [Recovering/Resolving]
  - Muscle rigidity [Recovering/Resolving]
  - Delirium [Recovered/Resolved]
  - Psychotic disorder [Recovered/Resolved]
  - Psychomotor hyperactivity [Recovering/Resolving]
